FAERS Safety Report 4350652-X (Version None)
Quarter: 2004Q2

REPORT INFORMATION
  Report Type: 
  Country: None (occurrence: None)
  Receive Date: 20040427
  Receipt Date: 20040412
  Transmission Date: 20050107
  Serious: Yes (Other)
  Sender: FDA-Public Use
  Company Number: 6008373

PATIENT
  Age: 68 Year
  Sex: Female

DRUGS (8)
  1. ENALAPRIL MERCK (20 MG, TABLETS) (ENALAPRIL) [Suspect]
     Indication: HYPERTENSION
     Dosage: 20 MG (1 IN 1 D), ORAL
     Route: 048
     Dates: start: 20040226, end: 20040318
  2. GLYBURIDE [Concomitant]
  3. FOLIC ACID [Concomitant]
  4. CELECOXIB (CELECOXIB) [Concomitant]
  5. OMEPRAZOLE [Concomitant]
  6. ACETYLSALICYLIC ACID SRT [Concomitant]
  7. DEFLAZACORT (DEFLAZACORT) [Concomitant]
  8. HYDROXYCHLOROQUINE SULPHATE [Concomitant]

REACTIONS (6)
  - COUGH [None]
  - EYELID OEDEMA [None]
  - FACE OEDEMA [None]
  - LACRIMATION INCREASED [None]
  - PRURITUS [None]
  - SENSATION OF FOREIGN BODY [None]
